FAERS Safety Report 7373398-2 (Version None)
Quarter: 2011Q1

REPORT INFORMATION
  Report Type: 
  Country: None (occurrence: None)
  Receive Date: 20110325
  Receipt Date: 20110311
  Transmission Date: 20110831
  Serious: Yes (Other)
  Sender: FDA-Public Use
  Company Number: US-MYLANLABS-2011S1005510

PATIENT
  Age: 41 Year
  Sex: Female

DRUGS (4)
  1. FILGRASTIM [Suspect]
     Route: 065
  2. LORAZEPAM [Suspect]
     Route: 065
  3. LETROZOLE [Suspect]
     Route: 065
  4. CITALOPRAM [Suspect]
     Route: 065

REACTIONS (1)
  - NEUTROPHIL PELGER-HUET ANOMALY PRESENT [None]
